FAERS Safety Report 5334030-2 (Version None)
Quarter: 2007Q2

REPORT INFORMATION
  Report Type: 
  Country: None (occurrence: None)
  Receive Date: 20070524
  Receipt Date: 20070522
  Transmission Date: 20071010
  Serious: Yes (Hospitalization)
  Sender: FDA-Public Use
  Company Number: JP-ROXANE LABORATORIES, INC-2007-BP-06884RO

PATIENT
  Age: 4 Year
  Sex: Female

DRUGS (1)
  1. THEOPHYLLINE 80MG/15ML ELIXIR [Suspect]
     Indication: ASTHMA
     Route: 048

REACTIONS (6)
  - ENCEPHALOPATHY [None]
  - HYPERAMMONAEMIA [None]
  - HYPERGLYCAEMIA [None]
  - HYPERPYREXIA [None]
  - SERUM FERRITIN INCREASED [None]
  - STATUS EPILEPTICUS [None]
